FAERS Safety Report 8222486-7 (Version None)
Quarter: 2012Q1

REPORT INFORMATION
  Report Type: 
  Country: None (occurrence: None)
  Receive Date: 20120320
  Receipt Date: 20120313
  Transmission Date: 20120608
  Serious: Yes (Hospitalization, Other)
  Sender: FDA-Public Use
  Company Number: US-TEVA-327281USA

PATIENT
  Sex: Male

DRUGS (4)
  1. AMIODARONE HYDROCHLORIDE [Suspect]
     Indication: GOUT
  2. COLCRYS [Suspect]
     Indication: GOUT
     Dosage: 1.2 MILLIGRAM;
     Dates: end: 20110101
  3. DIURETIC [Concomitant]
  4. COLCHICINE [Suspect]
     Indication: GOUT
     Dosage: 1.2 MILLIGRAM;
     Dates: end: 20110101

REACTIONS (6)
  - DEHYDRATION [None]
  - DYSSTASIA [None]
  - ABASIA [None]
  - BIOPSY MUSCLE ABNORMAL [None]
  - RENAL FAILURE ACUTE [None]
  - TOXICITY TO VARIOUS AGENTS [None]
